APPROVED DRUG PRODUCT: AZELASTINE HYDROCHLORIDE
Active Ingredient: AZELASTINE HYDROCHLORIDE
Strength: 0.05%
Dosage Form/Route: SOLUTION/DROPS;OPHTHALMIC
Application: A210092 | Product #001 | TE Code: AT
Applicant: GLAND PHARMA LTD
Approved: Feb 25, 2020 | RLD: No | RS: No | Type: RX